FAERS Safety Report 5339028-6 (Version None)
Quarter: 2007Q2

REPORT INFORMATION
  Report Type: 
  Country: None (occurrence: None)
  Receive Date: 20070525
  Receipt Date: 20070511
  Transmission Date: 20071010
  Serious: Yes (Hospitalization)
  Sender: FDA-Public Use
  Company Number: S07-SWI-02134-01

PATIENT
  Age: 57 Year
  Sex: Male

DRUGS (8)
  1. ESCITALOPRAM [Suspect]
     Dosage: 10 MG QD PO
     Route: 048
     Dates: start: 20070209, end: 20070222
  2. ESCITALOPRAM [Suspect]
     Dosage: 20 MG QD PO
     Route: 048
     Dates: start: 20070223, end: 20070301
  3. ESCITALOPRAM [Suspect]
     Dosage: 10 MG QD PO
     Route: 048
     Dates: start: 20070302
  4. RISPERDAL [Suspect]
     Dosage: 2 MG QD PO
     Route: 048
     Dates: start: 20070124, end: 20070227
  5. RISPERDAL [Suspect]
     Dosage: 1 MG QD PO
     Route: 048
     Dates: start: 20070117, end: 20070123
  6. DIPIPERON (PIPAMPERONE) [Concomitant]
  7. GLUCOPHAGE [Concomitant]
  8. IBUPROFEN [Concomitant]

REACTIONS (2)
  - NEUTROPENIA [None]
  - WHITE BLOOD CELL COUNT DECREASED [None]
